FAERS Safety Report 11449915 (Version 1)
Quarter: 2015Q3

REPORT INFORMATION
  Report Type: Spontaneous
  Country: US (occurrence: US)
  Receive Date: 20150903
  Receipt Date: 20150903
  Transmission Date: 20151125
  Serious: No
  Sender: FDA-Public Use
  Company Number: US-ROCHE-1083424

PATIENT
  Sex: Female

DRUGS (5)
  1. TELAPREVIR [Suspect]
     Active Substance: TELAPREVIR
     Indication: PRODUCT USED FOR UNKNOWN INDICATION
     Route: 065
     Dates: start: 20111028
  2. PEGASYS [Suspect]
     Active Substance: PEGINTERFERON ALFA-2A
     Indication: PRODUCT USED FOR UNKNOWN INDICATION
     Route: 065
     Dates: start: 20111028
  3. RIBAVIRIN. [Suspect]
     Active Substance: RIBAVIRIN
     Indication: PRODUCT USED FOR UNKNOWN INDICATION
     Route: 065
     Dates: start: 20111028
  4. RIBAVIRIN. [Suspect]
     Active Substance: RIBAVIRIN
     Dosage: THERAPY DOSE REDUCED.
     Route: 065
  5. PEGASYS [Suspect]
     Active Substance: PEGINTERFERON ALFA-2A
     Dosage: THERAPY DOSE REDUCED.
     Route: 065

REACTIONS (3)
  - Platelet count decreased [Unknown]
  - Haemoglobin decreased [Unknown]
  - Vision blurred [Unknown]
